FAERS Safety Report 8543323-7 (Version None)
Quarter: 2012Q3

REPORT INFORMATION
  Report Type: 
  Country: None (occurrence: None)
  Receive Date: 20120719
  Receipt Date: 20120719
  Transmission Date: 20120928
  Serious: No
  Sender: FDA-Public Use
  Company Number: None

PATIENT
  Sex: Female
  Weight: 56.6996 kg

DRUGS (5)
  1. BETASERON [Suspect]
     Indication: MULTIPLE SCLEROSIS
     Dosage: EVERY OTHER DAY SQ
     Route: 058
  2. BETASERON [Concomitant]
  3. COPAXONE INJECTION [Concomitant]
  4. AVONEX [Concomitant]
  5. AVONEX [Suspect]
     Dosage: WEEKLY IM
     Route: 030

REACTIONS (14)
  - NAUSEA [None]
  - SOMNAMBULISM [None]
  - FATIGUE [None]
  - DEPRESSION [None]
  - HYPERHIDROSIS [None]
  - SKIN NECROSIS [None]
  - PYREXIA [None]
  - BLOOD COUNT ABNORMAL [None]
  - CHILLS [None]
  - BONE PAIN [None]
  - DYSURIA [None]
  - ASTHENIA [None]
  - QUALITY OF LIFE DECREASED [None]
  - PAIN [None]
